FAERS Safety Report 5331784-6 (Version None)
Quarter: 2007Q2

REPORT INFORMATION
  Report Type: 
  Country: None (occurrence: None)
  Receive Date: 20070517
  Receipt Date: 20070507
  Transmission Date: 20071010
  Serious: Yes (Hospitalization)
  Sender: FDA-Public Use
  Company Number: TPA2007A00974

PATIENT
  Sex: Female

DRUGS (4)
  1. PIOGLITAZONE HCL [Suspect]
     Indication: CARDIOVASCULAR EVENT PROPHYLAXIS
     Dosage: 1 IN 1 D, PER ORAL
     Route: 048
  2. PIOGLITAZONE HCL [Suspect]
     Indication: CEREBROVASCULAR ACCIDENT
     Dosage: 1 IN 1 D, PER ORAL
     Route: 048
  3. PIOGLITAZONE HCL [Suspect]
     Indication: MYOCARDIAL INFARCTION
     Dosage: 1 IN 1 D, PER ORAL
     Route: 048
  4. PIOGLITAZONE HCL [Suspect]
     Indication: PROPHYLAXIS
     Dosage: 1 IN 1 D, PER ORAL
     Route: 048

REACTIONS (9)
  - ALCOHOL USE [None]
  - CONTUSION [None]
  - FACIAL BONES FRACTURE [None]
  - FALL [None]
  - FRACTURE [None]
  - HYPOKALAEMIA [None]
  - NECK PAIN [None]
  - SEROMA [None]
  - TREATMENT FAILURE [None]
